FAERS Safety Report 7334555-4 (Version None)
Quarter: 2011Q1

REPORT INFORMATION
  Report Type: 
  Country: None (occurrence: None)
  Receive Date: 20110307
  Receipt Date: 20110224
  Transmission Date: 20110831
  Serious: Yes (Hospitalization)
  Sender: FDA-Public Use
  Company Number: DE-SANOFI-AVENTIS-2011SA011650

PATIENT
  Age: 62 Year
  Sex: Female

DRUGS (12)
  1. HYDROXYCHLOROQUINE [Suspect]
     Indication: RHEUMATOID ARTHRITIS
     Route: 065
     Dates: start: 20060101
  2. DICLOFENAC [Concomitant]
     Dates: start: 20070101
  3. FLUOCORTOLONE [Concomitant]
  4. ULTRALAN /GFR/ [Concomitant]
     Dates: start: 20070101
  5. METOPROLOL [Concomitant]
     Dates: start: 20070101
  6. LORZAAR [Concomitant]
     Dates: start: 20070101
  7. LANTAREL [Suspect]
     Indication: RHEUMATOID ARTHRITIS
     Route: 065
     Dates: start: 20080101
  8. RITUXIMAB [Suspect]
     Indication: RHEUMATOID ARTHRITIS
     Dates: start: 20100106
  9. AMLODIPINE [Concomitant]
     Dates: start: 20070101
  10. DIGIMERCK [Concomitant]
     Dates: start: 20070101
  11. FOLSAN [Concomitant]
     Dates: start: 20070101
  12. CALCIUM W/COLECALCIFEROL [Concomitant]
     Dates: start: 20070101

REACTIONS (21)
  - SIMPLEX VIRUS TEST POSITIVE [None]
  - CERVIX INFLAMMATION [None]
  - BURNING SENSATION [None]
  - DIVERTICULITIS [None]
  - HYPERTENSION [None]
  - LUNG INFECTION PSEUDOMONAL [None]
  - DYSGEUSIA [None]
  - CONDITION AGGRAVATED [None]
  - WEIGHT DECREASED [None]
  - COLONIC STENOSIS [None]
  - DYSPHAGIA [None]
  - STOMATITIS [None]
  - GASTRITIS [None]
  - PLEURISY [None]
  - PNEUMONIA [None]
  - OESOPHAGEAL DISORDER [None]
  - ANAEMIA [None]
  - ENDOMETRIAL HYPERPLASIA [None]
  - CORONARY ARTERY DISEASE [None]
  - PULMONARY FIBROSIS [None]
  - DISEASE PROGRESSION [None]
